FAERS Safety Report 9646129 (Version 3)
Quarter: 2014Q1

REPORT INFORMATION
  Report Type: Spontaneous
  Country: US (occurrence: US)
  Receive Date: 20131025
  Receipt Date: 20140206
  Transmission Date: 20141002
  Serious: Yes (Death)
  Sender: FDA-Public Use
  Company Number: US-INCYTE CORPORATION-2013IN002477

PATIENT
  Sex: Female
  Weight: 54 kg

DRUGS (5)
  1. JAKAFI [Suspect]
     Indication: MYELOFIBROSIS
     Dosage: 5 MG, BID
     Dates: start: 201202
  2. JAKAFI [Suspect]
     Dosage: 20 MG, BID
     Route: 048
     Dates: end: 201310
  3. DESFERAL [Concomitant]
     Indication: HAEMOSIDEROSIS
     Route: 048
  4. DESFERAL [Concomitant]
     Route: 042
  5. COUMADIN                           /00014802/ [Concomitant]
     Indication: EMBOLISM VENOUS

REACTIONS (3)
  - Disease progression [Fatal]
  - Anaemia [Fatal]
  - Cardiac failure congestive [Fatal]
